FAERS Safety Report 14696038 (Version 2)
Quarter: 2018Q2

REPORT INFORMATION
  Report Type: Report from Study
  Country: CA (occurrence: CA)
  Receive Date: 20180329
  Receipt Date: 20180402
  Transmission Date: 20180711
  Serious: Yes (Other)
  Sender: FDA-Public Use
  Company Number: CA-JNJFOC-20180340537

PATIENT
  Age: 35 Year
  Sex: Male

DRUGS (2)
  1. STELARA [Suspect]
     Active Substance: USTEKINUMAB
     Indication: CROHN^S DISEASE
     Route: 058
     Dates: start: 20170921
  2. ENTOCORT [Suspect]
     Active Substance: BUDESONIDE
     Indication: CROHN^S DISEASE
     Route: 065
     Dates: start: 20180314

REACTIONS (4)
  - Off label use [Unknown]
  - Nasopharyngitis [Not Recovered/Not Resolved]
  - Gastroenteritis norovirus [Unknown]
  - Product use issue [Unknown]

NARRATIVE: CASE EVENT DATE: 20170921
